FAERS Safety Report 4400811-2 (Version None)
Quarter: 2004Q3

REPORT INFORMATION
  Report Type: 
  Country: None (occurrence: None)
  Receive Date: 20040907
  Receipt Date: 20030619
  Transmission Date: 20050211
  Serious: No
  Sender: FDA-Public Use
  Company Number: US-BRISTOL-MYERS SQUIBB COMPANY-12306437

PATIENT
  Age: 82 Year
  Sex: Female
  Weight: 56 kg

DRUGS (6)
  1. COUMADIN [Suspect]
     Indication: CEREBROVASCULAR ACCIDENT
     Dosage: DOSE VALUE:  TWO TABLET MON AND TUE ALTERNATING WITH 1 TABLET WED, THURS, FRI, SAT AND SUN.
     Route: 048
  2. NORVASC [Concomitant]
  3. ATENOLOL [Concomitant]
  4. ZOCOR [Concomitant]
  5. CALTRATE [Concomitant]
  6. SOLGAR HIGH POTENCY VITAMIN B COMPLEX [Concomitant]

REACTIONS (1)
  - URINE ODOUR ABNORMAL [None]
